FAERS Safety Report 24292468 (Version 3)
Quarter: 2024Q4

REPORT INFORMATION
  Report Type: Report from Study
  Country: US (occurrence: US)
  Receive Date: 20240906
  Receipt Date: 20241001
  Transmission Date: 20250114
  Serious: Yes (Other)
  Sender: ABBVIE
  Company Number: US-ABBVIE-5907849

PATIENT
  Age: 86 Year
  Sex: Female

DRUGS (1)
  1. HUMIRA [Suspect]
     Active Substance: ADALIMUMAB
     Indication: Crohn^s disease
     Dosage: CITRATE FREE
     Route: 058
     Dates: start: 20170116

REACTIONS (4)
  - Obstruction gastric [Unknown]
  - COVID-19 [Unknown]
  - Sinusitis [Unknown]
  - Fear [Unknown]

NARRATIVE: CASE EVENT DATE: 20240901
